FAERS Safety Report 8450337-4 (Version None)
Quarter: 2012Q2

REPORT INFORMATION
  Report Type: 
  Country: None (occurrence: None)
  Receive Date: 20120620
  Receipt Date: 20120614
  Transmission Date: 20120825
  Serious: Yes (Hospitalization)
  Sender: FDA-Public Use
  Company Number: PHHO2012DE009067

PATIENT
  Age: 38 Year
  Sex: Male
  Weight: 79 kg

DRUGS (4)
  1. PROGRAF [Concomitant]
     Indication: PANCREAS TRANSPLANT
     Dosage: 8 MG, QD
     Route: 048
     Dates: start: 20111020
  2. PROGRAF [Concomitant]
     Dosage: 17 MG, QD
     Route: 048
  3. PREDNISOLONE [Concomitant]
     Indication: PANCREAS TRANSPLANT
     Dosage: 30 MG, QD
     Route: 048
     Dates: start: 20111022
  4. MYCOPHENOLIC ACID [Suspect]
     Indication: PANCREAS TRANSPLANT
     Dosage: 1440 MG, QD
     Route: 048
     Dates: start: 20111020

REACTIONS (3)
  - RENAL ARTERY STENOSIS [None]
  - RENAL ANEURYSM [None]
  - PANCREATIC HAEMORRHAGE [None]
